FAERS Safety Report 17920946 (Version 3)
Quarter: 2020Q4

REPORT INFORMATION
  Report Type: Report from Study
  Country: None (occurrence: US)
  Receive Date: 20200622
  Receipt Date: 20201214
  Transmission Date: 20210113
  Serious: Yes (Hospitalization, Other)
  Sender: FDA-Public Use
  Company Number: US-ABBVIE-20K-163-3449428-00

PATIENT
  Sex: Male

DRUGS (1)
  1. HUMIRA [Suspect]
     Active Substance: ADALIMUMAB
     Indication: ANKYLOSING SPONDYLITIS
     Dosage: CITRATE FREE
     Route: 058

REACTIONS (5)
  - Cerebral haemorrhage [Unknown]
  - Visual impairment [Unknown]
  - Memory impairment [Unknown]
  - Blindness unilateral [Unknown]
  - Fall [Unknown]

NARRATIVE: CASE EVENT DATE: 2020
